FAERS Safety Report 10244359 (Version 1)
Quarter: 2014Q2

REPORT INFORMATION
  Report Type: Spontaneous
  Country: US (occurrence: US)
  Receive Date: 20140618
  Receipt Date: 20140618
  Transmission Date: 20141212
  Serious: No
  Sender: FDA-Public Use
  Company Number: US-009507513-1406USA007857

PATIENT
  Sex: Female

DRUGS (3)
  1. PROVENTIL [Suspect]
     Indication: ASTHMA
     Dosage: 2 DF, Q4H; TWO PUFFS EVERY FOR HOURS, OR WHEN NEEDED
     Route: 055
  2. ALBUTEROL [Concomitant]
  3. SYMBICORT [Concomitant]

REACTIONS (2)
  - Wheezing [Recovered/Resolved]
  - Product quality issue [Unknown]
